FAERS Safety Report 4347968-X (Version None)
Quarter: 2004Q2

REPORT INFORMATION
  Report Type: 
  Country: None (occurrence: None)
  Receive Date: 20040422
  Receipt Date: 20040408
  Transmission Date: 20050107
  Serious: Yes (Other)
  Sender: FDA-Public Use
  Company Number: PHEH2004US0414

PATIENT
  Age: 64 Year
  Sex: Female

DRUGS (3)
  1. LOTREL [Suspect]
     Indication: HYPERTENSION
     Dosage: 5 MG AMLOD/20 MG BENAZ QD,
     Dates: start: 20030401, end: 20040403
  2. CENTRUM SELECT (VITAMINS NOS) [Suspect]
     Dates: start: 20040403, end: 20040403
  3. ESTRACE ^ROBERTS^ [Concomitant]

REACTIONS (3)
  - RASH [None]
  - SWOLLEN TONGUE [None]
  - URTICARIA [None]
